FAERS Safety Report 21063362 (Version 1)
Quarter: 2022Q3

REPORT INFORMATION
  Report Type: Spontaneous
  Country: CN (occurrence: None)
  Receive Date: 20220711
  Receipt Date: 20220711
  Transmission Date: 20221026
  Serious: Yes (Other)
  Sender: FDA-Public Use
  Company Number: CN-ROCHE-3130150

PATIENT
  Age: 39 Year
  Sex: Female
  Weight: 58 kg

DRUGS (3)
  1. TAMIFLU [Suspect]
     Active Substance: OSELTAMIVIR PHOSPHATE
     Indication: Influenza
     Route: 048
     Dates: start: 20220624, end: 20220625
  2. EPINASTINE [Concomitant]
     Active Substance: EPINASTINE
  3. MIZOLASTINE [Concomitant]
     Active Substance: MIZOLASTINE

REACTIONS (1)
  - Dermatitis contact [Recovering/Resolving]

NARRATIVE: CASE EVENT DATE: 20220625
